FAERS Safety Report 7971583-X (Version None)
Quarter: 2011Q4

REPORT INFORMATION
  Report Type: 
  Country: None (occurrence: None)
  Receive Date: 20111212
  Receipt Date: 20111201
  Transmission Date: 20120403
  Serious: Yes (Other)
  Sender: FDA-Public Use
  Company Number: US-ASTRAZENECA-2010SE21224

PATIENT
  Age: 88 Year
  Sex: Female
  Weight: 60.8 kg

DRUGS (10)
  1. NEXIUM [Suspect]
     Indication: GASTROOESOPHAGEAL REFLUX DISEASE
     Route: 048
     Dates: start: 20070101
  2. ALPRAZOLAM [Concomitant]
  3. IRON [Concomitant]
  4. AMLODIPINE [Concomitant]
     Indication: BLOOD PRESSURE
  5. AMBUVENT FLUVENT [Concomitant]
     Dosage: AS NEEDED
  6. NEXIUM [Suspect]
     Indication: EROSIVE OESOPHAGITIS
     Route: 048
     Dates: start: 20070101
  7. ALLOPURINOL [Concomitant]
  8. LIPITOR [Concomitant]
  9. METOPROLOL TARTRATE [Concomitant]
  10. PLAVIX [Concomitant]

REACTIONS (8)
  - ABASIA [None]
  - CEREBROVASCULAR ACCIDENT [None]
  - TREMOR [None]
  - TRANSIENT ISCHAEMIC ATTACK [None]
  - OESOPHAGEAL PAIN [None]
  - BACK PAIN [None]
  - DIVERTICULITIS [None]
  - DRUG DOSE OMISSION [None]
